FAERS Safety Report 5034294-9 (Version None)
Quarter: 2006Q2

REPORT INFORMATION
  Report Type: 
  Country: None (occurrence: None)
  Receive Date: 20060620
  Receipt Date: 20060531
  Transmission Date: 20061013
  Serious: No
  Sender: FDA-Public Use
  Company Number: FI200606000149

PATIENT
  Age: 57 Year
  Sex: Male

DRUGS (2)
  1. CIALIS [Suspect]
     Indication: ERECTILE DYSFUNCTION
     Dosage: 20 MG, AS NEEDED, ORAL
     Route: 048
     Dates: start: 20040101
  2. OMNIC (TAMSULOSIN HYDROCHLORIDE) [Concomitant]

REACTIONS (4)
  - NASAL CONGESTION [None]
  - OCULAR HYPERAEMIA [None]
  - VISION BLURRED [None]
  - VISUAL ACUITY REDUCED [None]
